FAERS Safety Report 21679797 (Version 4)
Quarter: 2023Q2

REPORT INFORMATION
  Report Type: Report from Study
  Country: US (occurrence: US)
  Receive Date: 20221205
  Receipt Date: 20230619
  Transmission Date: 20230721
  Serious: No
  Sender: FDA-Public Use
  Company Number: US-002147023-NVSC2022US281222

PATIENT
  Age: 13 Year
  Sex: Female

DRUGS (1)
  1. ILARIS [Suspect]
     Active Substance: CANAKINUMAB
     Indication: Pyrexia
     Dosage: 135 MG, EVERY 6 WEEKS
     Route: 065
     Dates: start: 2019

REACTIONS (3)
  - Headache [Unknown]
  - Product dose omission issue [Unknown]
  - Product dispensing error [Unknown]
